FAERS Safety Report 4985851-7 (Version None)
Quarter: 2006Q2

REPORT INFORMATION
  Report Type: 
  Country: None (occurrence: None)
  Receive Date: 20060421
  Receipt Date: 20060403
  Transmission Date: 20061013
  Serious: Yes (Life-Threatening)
  Sender: FDA-Public Use
  Company Number: 2006036097

PATIENT
  Age: 78 Year
  Sex: Male

DRUGS (4)
  1. ESTRACYT (ESTRAMUSTINE PHOSPHATE SODIUM) [Suspect]
     Indication: ILL-DEFINED DISORDER
     Dosage: 560 MG (560 MG,), ORAL
     Route: 048
     Dates: start: 19890101, end: 20011115
  2. TRANDOLAPRIL [Suspect]
     Indication: HYPERTENSION
     Dosage: 1 MG (1 MG), ORAL
     Route: 048
     Dates: end: 20011115
  3. IMIPRAMINE [Suspect]
     Indication: DEPRESSION
     Dosage: 60 MG (60 MG), ORAL
     Route: 048
     Dates: end: 20011115
  4. PLAUNOTOL (PLAUNOTOL) [Concomitant]

REACTIONS (2)
  - BILIARY CIRRHOSIS PRIMARY [None]
  - HEPATIC NEOPLASM MALIGNANT [None]
